FAERS Safety Report 10465627 (Version 2)
Quarter: 2014Q3

REPORT INFORMATION
  Report Type: Spontaneous
  Country: DK (occurrence: SK)
  Receive Date: 20140919
  Receipt Date: 20140919
  Transmission Date: 20150326
  Serious: Yes (Hospitalization, Other)
  Sender: FDA-Public Use
  Company Number: SI-FRI-1000028224

PATIENT
  Age: 86 Year
  Sex: Male

DRUGS (12)
  1. LAMOTRIGINE. [Concomitant]
     Active Substance: LAMOTRIGINE
     Dosage: 400 MG
  2. CARVEDILOL. [Concomitant]
     Active Substance: CARVEDILOL
     Indication: CARDIAC DISORDER
     Dosage: 3 MG
     Route: 048
  3. IRON (III)-HYDROXIDE [Concomitant]
     Dosage: 200 MG
  4. ESCITALOPRAM [Suspect]
     Active Substance: ESCITALOPRAM OXALATE
     Indication: DEPRESSION
     Dosage: 5 MG
     Route: 048
  5. PANTOPRAZOLE [Concomitant]
     Active Substance: PANTOPRAZOLE SODIUM
     Dosage: 20 MG
     Route: 048
  6. VALPROIC ACID. [Concomitant]
     Active Substance: VALPROIC ACID
  7. ACETYLSALICILIC ACID [Concomitant]
     Indication: CARDIAC DISORDER
     Dosage: 100 MG
     Route: 048
  8. DIGOXIN. [Concomitant]
     Active Substance: DIGOXIN
     Indication: CARDIAC DISORDER
     Route: 048
  9. LITALIR [Concomitant]
     Active Substance: HYDROXYUREA
     Indication: MYELOPROLIFERATIVE DISORDER
     Dosage: 2000 MG
     Route: 048
  10. ESCITALOPRAM [Suspect]
     Active Substance: ESCITALOPRAM OXALATE
     Dosage: 10 MG
     Route: 048
  11. QUETIAPINE [Concomitant]
     Active Substance: QUETIAPINE
     Dosage: 500 MG
  12. DISTRANEURIN [Concomitant]
     Active Substance: CLOMETHIAZOLE
     Indication: INSOMNIA
     Dosage: 400 MG
     Route: 048

REACTIONS (3)
  - Delirium [Unknown]
  - Hallucination, olfactory [Recovered/Resolved]
  - Hallucination, visual [Recovered/Resolved]
